FAERS Safety Report 10048018 (Version 2)
Quarter: 2014Q2

REPORT INFORMATION
  Report Type: Spontaneous
  Country: US (occurrence: None)
  Receive Date: 20140327
  Receipt Date: 20140515
  Transmission Date: 20141212
  Serious: Yes (Hospitalization, Disabling, Other)
  Sender: FDA-Public Use
  Company Number: ADR-2014-00479

PATIENT
  Age: 61 Year
  Sex: Female

DRUGS (10)
  1. BACLOFEN [Suspect]
  2. BUPIVACAINE [Suspect]
  3. CLONIDINE [Suspect]
  4. AMITRIPTYLINE [Suspect]
  5. LYRICA [Suspect]
  6. PAMELOR [Suspect]
  7. PROPOFOL [Suspect]
  8. NEURONTIN [Suspect]
  9. ROZEREM [Suspect]
  10. VERSED [Suspect]

REACTIONS (30)
  - Monoplegia [None]
  - Anuria [None]
  - Circadian rhythm sleep disorder [None]
  - Clitoral engorgement [None]
  - Hypoaesthesia [None]
  - Coccydynia [None]
  - Multiple sclerosis [None]
  - Diabetes mellitus [None]
  - Impaired gastric emptying [None]
  - Gastrooesophageal reflux disease [None]
  - Multiple allergies [None]
  - Weight increased [None]
  - Obesity [None]
  - Fear [None]
  - Cystitis interstitial [None]
  - No therapeutic response [None]
  - Spinal disorder [None]
  - Fractured coccyx [None]
  - Blood cortisol abnormal [None]
  - Pruritus [None]
  - Back pain [None]
  - Thyroid function test abnormal [None]
  - Urinary retention [None]
  - Mobility decreased [None]
  - Tendon rupture [None]
  - Foot fracture [None]
  - Wheelchair user [None]
  - Vaginismus [None]
  - Spinal column injury [None]
  - Ankle fracture [None]
